FAERS Safety Report 14708210 (Version 3)
Quarter: 2018Q2

REPORT INFORMATION
  Report Type: Report from Study
  Country: AT (occurrence: AT)
  Receive Date: 20180403
  Receipt Date: 20180430
  Transmission Date: 20180711
  Serious: Yes (Death, Other)
  Sender: FDA-Public Use
  Company Number: PHHY2018AT057324

PATIENT
  Sex: Male
  Weight: 14 kg

DRUGS (2)
  1. TRAMETINIB [Suspect]
     Active Substance: TRAMETINIB
     Indication: METASTATIC MALIGNANT MELANOMA
     Dosage: 0.35 MG, QD
     Route: 048
     Dates: start: 20180322, end: 20180329
  2. TRAMETINIB [Suspect]
     Active Substance: TRAMETINIB
     Indication: JUVENILE CHRONIC MYELOMONOCYTIC LEUKAEMIA

REACTIONS (4)
  - Thrombocytopenia [Unknown]
  - Circulatory collapse [Fatal]
  - Cerebral haemorrhage [Unknown]
  - Bradycardia [Unknown]

NARRATIVE: CASE EVENT DATE: 20180330
